FAERS Safety Report 17788393 (Version 1)
Quarter: 2020Q2

REPORT INFORMATION
  Report Type: Report from Study
  Country: None (occurrence: US)
  Receive Date: 20200515
  Receipt Date: 20200515
  Transmission Date: 20200714
  Serious: Yes (Death)
  Sender: FDA-Public Use
  Company Number: US-ABBVIE-20K-163-3405197-00

PATIENT
  Sex: Female

DRUGS (5)
  1. VENCLEXTA [Suspect]
     Active Substance: VENETOCLAX
     Indication: ANGINA PECTORIS
  2. VENCLEXTA [Suspect]
     Active Substance: VENETOCLAX
     Indication: DEHYDRATION
  3. VENCLEXTA [Suspect]
     Active Substance: VENETOCLAX
     Indication: HYPOVOLAEMIA
     Route: 048
  4. VENCLEXTA [Suspect]
     Active Substance: VENETOCLAX
     Indication: DEMENTIA
  5. VENCLEXTA [Suspect]
     Active Substance: VENETOCLAX
     Indication: DEMENTIA

REACTIONS (2)
  - Death [Fatal]
  - Off label use [Unknown]
